FAERS Safety Report 9540425 (Version 1)
Quarter: 2013Q3

REPORT INFORMATION
  Report Type: Spontaneous
  Country: US (occurrence: US)
  Receive Date: 20130920
  Receipt Date: 20130920
  Transmission Date: 20140515
  Serious: Yes (Other)
  Sender: FDA-Public Use
  Company Number: US-GLAXOSMITHKLINE-A1042325A

PATIENT
  Sex: Female

DRUGS (1)
  1. AVANDAMET [Suspect]
     Indication: PRODUCT USED FOR UNKNOWN INDICATION
     Dosage: 250MG TWICE PER DAY

REACTIONS (6)
  - VIIth nerve paralysis [Unknown]
  - Local swelling [Unknown]
  - Weight increased [Unknown]
  - Weight decreased [Unknown]
  - Dry skin [Unknown]
  - Alopecia [Unknown]
